FAERS Safety Report 7781112-1 (Version None)
Quarter: 2011Q3

REPORT INFORMATION
  Report Type: 
  Country: None (occurrence: None)
  Receive Date: 20110927
  Receipt Date: 20110922
  Transmission Date: 20111222
  Serious: Yes (Hospitalization)
  Sender: FDA-Public Use
  Company Number: PHHY2011AT84542

PATIENT
  Sex: Female

DRUGS (3)
  1. ANALGESICS [Concomitant]
     Dosage: UNK UKN, UNK
  2. ACE INHIBITORS [Concomitant]
     Dosage: UNK UKN, UNK
  3. ZOLEDRONOC ACID [Suspect]
     Dosage: UNK UKN, UNK
     Route: 042

REACTIONS (1)
  - ANURIA [None]
